FAERS Safety Report 11010455 (Version 1)
Quarter: 2015Q2

REPORT INFORMATION
  Report Type: Spontaneous
  Country: US (occurrence: US)
  Receive Date: 20150410
  Receipt Date: 20150410
  Transmission Date: 20150821
  Serious: No
  Sender: FDA-Public Use
  Company Number: US-GLAXOSMITHKLINE-US2015047111

PATIENT
  Age: 71 Year
  Sex: Male

DRUGS (26)
  1. ASPIRIN. [Concomitant]
     Active Substance: ASPIRIN
  2. IMDUR [Concomitant]
     Active Substance: ISOSORBIDE MONONITRATE
  3. ALLOPURINOL. [Concomitant]
     Active Substance: ALLOPURINOL
  4. LASIX [Concomitant]
     Active Substance: FUROSEMIDE
  5. PRAVACHOL [Concomitant]
     Active Substance: PRAVASTATIN SODIUM
  6. PRILOSEC [Concomitant]
     Active Substance: OMEPRAZOLE MAGNESIUM
  7. TOPROL XL [Concomitant]
     Active Substance: METOPROLOL SUCCINATE
  8. TREANDA [Concomitant]
     Active Substance: BENDAMUSTINE HYDROCHLORIDE
  9. ROBAXIN [Concomitant]
     Active Substance: METHOCARBAMOL
  10. COMPAZINE [Concomitant]
     Active Substance: PROCHLORPERAZINE MALEATE
  11. BENADRYL [Concomitant]
     Active Substance: DIPHENHYDRAMINE HYDROCHLORIDE
  12. DECADRON [Concomitant]
     Active Substance: DEXAMETHASONE
  13. LOPRESSOR [Concomitant]
     Active Substance: METOPROLOL TARTRATE
  14. SOLU-CORTEF [Concomitant]
     Active Substance: HYDROCORTISONE SODIUM SUCCINATE
  15. NORCO [Concomitant]
     Active Substance: ACETAMINOPHEN\HYDROCODONE BITARTRATE
  16. OMEGA 3 [Concomitant]
     Active Substance: OMEGA-3 FATTY ACIDS
  17. PLAVIX [Concomitant]
     Active Substance: CLOPIDOGREL BISULFATE
  18. ZOFRAN [Concomitant]
     Active Substance: ONDANSETRON HYDROCHLORIDE
  19. ARZERRA [Suspect]
     Active Substance: OFATUMUMAB
     Indication: MANTLE CELL LYMPHOMA
     Dosage: 2000 MG, 1D
     Route: 042
     Dates: start: 20150401
  20. POTASSIUM [Concomitant]
     Active Substance: POTASSIUM
  21. POTASSIUM CHLORIDE. [Concomitant]
     Active Substance: POTASSIUM CHLORIDE
  22. LISINOPRIL. [Concomitant]
     Active Substance: LISINOPRIL
  23. COUMADIN [Concomitant]
     Active Substance: WARFARIN SODIUM
  24. FLOMAX (NOS) [Concomitant]
  25. MORPHINE SULFATE EXTENDED-RELEASE [Concomitant]
     Active Substance: MORPHINE SULFATE
  26. TYLENOL [Concomitant]
     Active Substance: ACETAMINOPHEN

REACTIONS (2)
  - Erythema [Not Recovered/Not Resolved]
  - Erythema [Recovering/Resolving]

NARRATIVE: CASE EVENT DATE: 20150408
